FAERS Safety Report 8000981-3 (Version None)
Quarter: 2011Q4

REPORT INFORMATION
  Report Type: 
  Country: None (occurrence: None)
  Receive Date: 20111222
  Receipt Date: 20101202
  Transmission Date: 20120403
  Serious: No
  Sender: FDA-Public Use
  Company Number: US-GLAXOSMITHKLINE-A0897409A

PATIENT
  Age: 15 Year
  Sex: Male

DRUGS (1)
  1. FLONASE [Suspect]
     Indication: RHINITIS ALLERGIC
     Dosage: 1SPR PER DAY
     Route: 045
     Dates: start: 20100701, end: 20101101

REACTIONS (6)
  - HEADACHE [None]
  - FATIGUE [None]
  - NASAL CONGESTION [None]
  - PAIN [None]
  - RHINORRHOEA [None]
  - ABDOMINAL PAIN UPPER [None]
